FAERS Safety Report 8610436-0 (Version None)
Quarter: 2012Q3

REPORT INFORMATION
  Report Type: 
  Country: None (occurrence: None)
  Receive Date: 20120822
  Receipt Date: 20120815
  Transmission Date: 20120928
  Serious: Yes (Other)
  Sender: FDA-Public Use
  Company Number: US-PFIZER INC-2012200763

PATIENT
  Age: 51 Year
  Sex: Female
  Weight: 97 kg

DRUGS (21)
  1. DIOVAN [Concomitant]
  2. VICTOZA [Concomitant]
  3. ACTOS [Concomitant]
     Dosage: TWICE WEEKLY
  4. ASPIRIN [Concomitant]
     Dosage: 81 MG, DAILY
  5. FENOFIBRATE [Concomitant]
  6. ALLI [Concomitant]
     Indication: WEIGHT CONTROL
     Dosage: UNK
  7. LANTUS [Concomitant]
     Dosage: AT BED TIME
  8. FERROUS SULFATE [Concomitant]
     Route: 048
  9. PEPCID [Concomitant]
     Dosage: AS NEEDED
  10. VITAMIN D [Concomitant]
  11. FLECTOR [Concomitant]
     Indication: ARTHRALGIA
  12. LASIX [Concomitant]
  13. VALACYCLOVIR HYDROCHLORIDE [Concomitant]
  14. EPZICOM [Concomitant]
     Dosage: DAILY
  15. ISENTRESS [Concomitant]
     Dosage: TWICE DAILY
  16. SUTENT [Suspect]
     Indication: METASTATIC RENAL CELL CARCINOMA
     Dosage: 25 MG
     Dates: start: 20120808
  17. LIPITOR [Concomitant]
  18. LOVAZA [Concomitant]
     Dosage: 1 G X2 TABS TWICE DAILY
  19. TYLENOL W/ CODEINE [Concomitant]
     Dosage: AT BED TIME
  20. FOLIC ACID [Concomitant]
     Route: 048
  21. ALLOPURINOL [Concomitant]
     Dosage: 100 MG, DAILY

REACTIONS (1)
  - RENAL IMPAIRMENT [None]
